FAERS Safety Report 14174224 (Version 2)
Quarter: 2017Q4

REPORT INFORMATION
  Report Type: Spontaneous
  Country: US (occurrence: US)
  Receive Date: 20171109
  Receipt Date: 20171215
  Transmission Date: 20180321
  Serious: No
  Sender: FDA-Public Use
  Company Number: US-ASTRAZENECA-2017SF11627

PATIENT
  Sex: Female

DRUGS (1)
  1. PULMICORT RESPULES [Suspect]
     Active Substance: BUDESONIDE
     Indication: ASTHMA
     Dosage: 0.25MG/ML, TWO TIMES A DAY
     Route: 055

REACTIONS (13)
  - Chest pain [Unknown]
  - Dyspnoea [Unknown]
  - Off label use [Unknown]
  - Fatigue [Unknown]
  - Feeling abnormal [Unknown]
  - Malaise [Unknown]
  - Food allergy [Unknown]
  - Dysgeusia [Unknown]
  - Product quality issue [Unknown]
  - Somnolence [Unknown]
  - Perfume sensitivity [Unknown]
  - Intentional device misuse [Unknown]
  - Drug administered to patient of inappropriate age [Unknown]
